FAERS Safety Report 13270362 (Version 1)
Quarter: 2017Q1

REPORT INFORMATION
  Report Type: Report from Study
  Country: BR (occurrence: BR)
  Receive Date: 20170224
  Receipt Date: 20170224
  Transmission Date: 20170428
  Serious: Yes (Other)
  Sender: FDA-Public Use
  Company Number: BR-GLAXOSMITHKLINE-PHHY2016BR036433

PATIENT
  Sex: Female
  Weight: 80 kg

DRUGS (2)
  1. DICLOFENAC POTASSIUM. [Suspect]
     Active Substance: DICLOFENAC POTASSIUM
     Indication: FOOT FRACTURE
     Dosage: UNK
     Route: 065
  2. ACLASTA [Suspect]
     Active Substance: ZOLEDRONIC ACID
     Indication: OSTEOPOROSIS
     Dosage: 5 MG, UNK
     Route: 042
     Dates: start: 20150313

REACTIONS (5)
  - Orthopaedic examination abnormal [Unknown]
  - Pain [Unknown]
  - Foot fracture [Unknown]
  - Peripheral swelling [Unknown]
  - Pain in extremity [Unknown]
